FAERS Safety Report 7096770-7 (Version None)
Quarter: 2010Q4

REPORT INFORMATION
  Report Type: 
  Country: None (occurrence: None)
  Receive Date: 20101111
  Receipt Date: 20091202
  Transmission Date: 20110411
  Serious: No
  Sender: FDA-Public Use
  Company Number: US-KINGPHARMUSA00001-K200901531

PATIENT
  Age: 47 Year
  Sex: Male
  Weight: 113.38 kg

DRUGS (2)
  1. FLECTOR [Suspect]
     Indication: PLANTAR FASCIITIS
     Dosage: 1 PATCH, QHS TWICE
     Route: 061
     Dates: start: 20091101, end: 20091101
  2. MOBIC [Concomitant]
     Indication: PLANTAR FASCIITIS
     Dosage: UNK
     Route: 048
     Dates: start: 20091101

REACTIONS (1)
  - NAUSEA [None]
